FAERS Safety Report 5120981-0 (Version None)
Quarter: 2006Q4

REPORT INFORMATION
  Report Type: 
  Country: None (occurrence: None)
  Receive Date: 20061002
  Receipt Date: 20060921
  Transmission Date: 20070319
  Serious: Yes (Hospitalization)
  Sender: FDA-Public Use
  Company Number: 229323

PATIENT
  Age: 53 Year
  Sex: Female

DRUGS (5)
  1. RITUXIMAB (RITUXIMAB) CONC FOR SOLUTION FOR INFUSION [Suspect]
     Indication: RHEUMATOID ARTHRITIS
     Dosage: 1 G, INTRAVENOUS
     Route: 042
     Dates: start: 20060710, end: 20060724
  2. PREDNISOLONE [Concomitant]
  3. METHOTREXATE [Concomitant]
  4. PLAQUENIL [Concomitant]
  5. CELEBREX [Concomitant]

REACTIONS (6)
  - ABDOMINAL PAIN [None]
  - COLONIC FISTULA [None]
  - CONSTIPATION [None]
  - DIVERTICULITIS [None]
  - VAGINAL FISTULA [None]
  - WHITE BLOOD CELL COUNT INCREASED [None]
